FAERS Safety Report 10076438 (Version 1)
Quarter: 2014Q2

REPORT INFORMATION
  Report Type: Spontaneous
  Country: US (occurrence: US)
  Receive Date: 20140414
  Receipt Date: 20140414
  Transmission Date: 20141212
  Serious: No
  Sender: FDA-Public Use
  Company Number: US-MYLANLABS-2013S1021598

PATIENT
  Age: 76 Year
  Sex: Male

DRUGS (4)
  1. TOPIRAMATE [Suspect]
     Indication: HEADACHE
     Dates: start: 20130903
  2. TOPIRAMATE [Suspect]
     Indication: OFF LABEL USE
     Dates: start: 20130903
  3. LINZESS [Suspect]
     Indication: ABDOMINAL PAIN UPPER
     Route: 048
     Dates: start: 20130903
  4. OXYCODONE [Concomitant]
     Indication: HEADACHE

REACTIONS (2)
  - Abdominal pain [Not Recovered/Not Resolved]
  - Abdominal discomfort [Not Recovered/Not Resolved]
